FAERS Safety Report 7980652-X (Version None)
Quarter: 2011Q4

REPORT INFORMATION
  Report Type: 
  Country: None (occurrence: None)
  Receive Date: 20111214
  Receipt Date: 20111209
  Transmission Date: 20120403
  Serious: Yes (Other)
  Sender: FDA-Public Use
  Company Number: CHPA2011US017254

PATIENT
  Age: 77 Year
  Sex: Female

DRUGS (3)
  1. EXCEDRIN TENSION HEADACHE [Suspect]
     Indication: ARTHRALGIA
     Dosage: UNK, PRN
     Route: 048
  2. AMLODIPINE BESYLATE [Concomitant]
     Indication: HYPERTENSION
     Dosage: 2.5 MG, QD
     Route: 048
  3. ASPIRIN [Concomitant]
     Indication: CARDIOVASCULAR EVENT PROPHYLAXIS
     Dosage: 81 MG, QD
     Route: 048

REACTIONS (5)
  - DRUG EFFECT DECREASED [None]
  - THERAPEUTIC RESPONSE UNEXPECTED [None]
  - OFF LABEL USE [None]
  - EPISTAXIS [None]
  - TABLET PHYSICAL ISSUE [None]
